FAERS Safety Report 15657454 (Version 10)
Quarter: 2019Q4

REPORT INFORMATION
  Report Type: Spontaneous
  Country: JP (occurrence: JP)
  Receive Date: 20181126
  Receipt Date: 20191112
  Transmission Date: 20200122
  Serious: Yes (Life-Threatening, Hospitalization, Other)
  Sender: FDA-Public Use
  Company Number: JP-PFIZER INC-2018481446

PATIENT
  Age: 63 Year
  Sex: Female
  Weight: 42.8 kg

DRUGS (2)
  1. PREGABALIN. [Suspect]
     Active Substance: PREGABALIN
     Indication: BACK PAIN
     Dosage: 25 MG, DAILY
     Route: 048
     Dates: start: 201710
  2. CELECOXIB. [Suspect]
     Active Substance: CELECOXIB
     Indication: BACK PAIN
     Dosage: 200 MG, DAILY
     Route: 048
     Dates: start: 201710

REACTIONS (2)
  - Acute hepatic failure [Recovered/Resolved]
  - Drug hypersensitivity [Recovered/Resolved]

NARRATIVE: CASE EVENT DATE: 2017
